FAERS Safety Report 7933429-5 (Version None)
Quarter: 2011Q4

REPORT INFORMATION
  Report Type: 
  Country: None (occurrence: None)
  Receive Date: 20111122
  Receipt Date: 20111109
  Transmission Date: 20120403
  Serious: Yes (Life-Threatening)
  Sender: FDA-Public Use
  Company Number: DE-MYLANLABS-2011S1023227

PATIENT
  Age: 27 Year
  Sex: Male
  Weight: 106 kg

DRUGS (1)
  1. PANTOPRAZOLE [Suspect]
     Indication: GASTROOESOPHAGEAL REFLUX DISEASE
     Dosage: 1-0-0-0
     Route: 048
     Dates: end: 20110301

REACTIONS (1)
  - LARYNGEAL OEDEMA [None]
